FAERS Safety Report 24579508 (Version 1)
Quarter: 2024Q4

REPORT INFORMATION
  Report Type: Report from Study
  Country: CA (occurrence: CA)
  Receive Date: 20241105
  Receipt Date: 20241105
  Transmission Date: 20250115
  Serious: Yes (Death, Other)
  Sender: GLAXOSMITHKLINE
  Company Number: CA-GLAXOSMITHKLINE-CA2024083701

PATIENT

DRUGS (1)
  1. DOSTARLIMAB [Suspect]
     Active Substance: DOSTARLIMAB
     Indication: Endometrial cancer
     Dosage: 500 MG, Q3W, THEN 1000 MG Q6W
     Route: 042
     Dates: start: 20240326, end: 20240704

REACTIONS (3)
  - Death [Fatal]
  - Renal failure [Unknown]
  - Illness [Unknown]
